FAERS Safety Report 11255056 (Version 3)
Quarter: 2016Q1

REPORT INFORMATION
  Report Type: Spontaneous
  Country: DE (occurrence: DE)
  Receive Date: 20150709
  Receipt Date: 20160215
  Transmission Date: 20160525
  Serious: Yes (Hospitalization, Other)
  Sender: FDA-Public Use
  Company Number: DE-BAYER-2015-368577

PATIENT
  Age: 43 Year
  Sex: Female
  Weight: 75 kg

DRUGS (3)
  1. MIRENA [Suspect]
     Active Substance: LEVONORGESTREL
     Indication: CONTRACEPTION
     Dosage: UNK
  2. MIRENA [Suspect]
     Active Substance: LEVONORGESTREL
     Indication: CONTRACEPTION
     Dosage: 20 MCG/24HR, CONT
     Route: 015
     Dates: start: 20150511
  3. MIRENA [Suspect]
     Active Substance: LEVONORGESTREL
     Indication: CONTRACEPTION
     Dosage: 20 MCG/24HR, CONT
     Route: 015
     Dates: start: 201002, end: 201505

REACTIONS (11)
  - Fibrocystic breast disease [None]
  - Dyspnoea exertional [Recovered/Resolved]
  - Atelectasis [Recovered/Resolved]
  - Pulmonary embolism [Recovered/Resolved]
  - Urinary tract infection [None]
  - Haemangioma of liver [None]
  - Mobility decreased [None]
  - Tricuspid valve incompetence [None]
  - Gastritis [None]
  - Device use error [None]
  - Invasive breast carcinoma [None]

NARRATIVE: CASE EVENT DATE: 201002
